FAERS Safety Report 8041616-3 (Version None)
Quarter: 2012Q1

REPORT INFORMATION
  Report Type: 
  Country: None (occurrence: None)
  Receive Date: 20120112
  Receipt Date: 20120106
  Transmission Date: 20120608
  Serious: Yes (Hospitalization, Other)
  Sender: FDA-Public Use
  Company Number: US-JNJFOC-20111010016

PATIENT
  Sex: Female

DRUGS (3)
  1. XARELTO [Suspect]
     Indication: KNEE ARTHROPLASTY
     Route: 065
     Dates: start: 20111007, end: 20111013
  2. XARELTO [Suspect]
     Indication: THROMBOSIS PROPHYLAXIS
     Route: 065
     Dates: start: 20111007, end: 20111013
  3. NEURONTIN [Concomitant]
     Indication: CONVULSION

REACTIONS (2)
  - WOUND HAEMORRHAGE [None]
  - OSTEOARTHRITIS [None]
